FAERS Safety Report 10912710 (Version 1)
Quarter: 2015Q1

REPORT INFORMATION
  Report Type: Spontaneous
  Country: US (occurrence: None)
  Receive Date: 20150310
  Receipt Date: 20150310
  Transmission Date: 20150721
  Serious: Yes (Life-Threatening, Hospitalization)
  Sender: FDA-Public Use
  Company Number: None

PATIENT
  Age: 31 Year
  Sex: Female
  Weight: 58.97 kg

DRUGS (2)
  1. ABILIFY MAINTAINA [Concomitant]
  2. RISPERDAL CONSTA [Suspect]
     Active Substance: RISPERIDONE
     Indication: BIPOLAR DISORDER
     Dates: start: 2007, end: 2010

REACTIONS (3)
  - Hallucination [None]
  - Nightmare [None]
  - Homicidal ideation [None]

NARRATIVE: CASE EVENT DATE: 20070801
